FAERS Safety Report 4788919-3 (Version None)
Quarter: 2005Q4

REPORT INFORMATION
  Report Type: 
  Country: None (occurrence: None)
  Receive Date: 20051004
  Receipt Date: 20050921
  Transmission Date: 20060501
  Serious: Yes (Hospitalization)
  Sender: FDA-Public Use
  Company Number: 2005132605

PATIENT
  Age: 79 Year
  Sex: Male
  Weight: 71 kg

DRUGS (5)
  1. FLUCONAZOLE [Suspect]
     Indication: ILL-DEFINED DISORDER
     Dosage: 400 MG (2 IN 1 D), INTRAVENOUS
     Route: 042
     Dates: start: 20050626, end: 20050704
  2. CIPROFLOXACIN [Concomitant]
     Indication: ILL-DEFINED DISORDER
     Dosage: 800 MG (2 IN 1 D), INTRAVENOUS
     Route: 042
     Dates: start: 20050626, end: 20050704
  3. ZOCOR [Suspect]
     Indication: HYPERCHOLESTEROLAEMIA
     Dosage: 40 MG (EVERY DAY), ORAL
     Route: 048
     Dates: end: 20050703
  4. ESOMEPRAZOLE MAGENSIUM (ESOMEPRAZOLE MAGNESIUM) [Concomitant]
  5. TICARCILLIN DISODIUM /CLAVULANATE POTASSIUM (CLAVULANATE POTASSIUM, TI [Concomitant]

REACTIONS (7)
  - ALANINE AMINOTRANSFERASE INCREASED [None]
  - BLOOD CREATINE PHOSPHOKINASE INCREASED [None]
  - BRONCHOALVEOLAR LAVAGE ABNORMAL [None]
  - CANDIDIASIS [None]
  - CREATININE RENAL CLEARANCE DECREASED [None]
  - HAEMODIALYSIS [None]
  - STENOTROPHOMONAS INFECTION [None]
